FAERS Safety Report 10970451 (Version 1)
Quarter: 2015Q1

REPORT INFORMATION
  Report Type: Spontaneous
  Country: US (occurrence: None)
  Receive Date: 20150330
  Receipt Date: 20150330
  Transmission Date: 20150721
  Serious: Yes (Disabling)
  Sender: FDA-Public Use
  Company Number: None

PATIENT
  Age: 56 Year
  Sex: Female
  Weight: 60.33 kg

DRUGS (6)
  1. VENTOLIN [Concomitant]
     Active Substance: ALBUTEROL SULFATE
  2. MULTIPLE VITAMIN [Concomitant]
     Active Substance: VITAMINS
  3. OMEGA 3 [Concomitant]
     Active Substance: OMEGA-3 FATTY ACIDS
  4. VITAMIN D3 [Concomitant]
     Active Substance: CHOLECALCIFEROL
  5. LEVAQUIN [Suspect]
     Active Substance: LEVOFLOXACIN
     Indication: LUNG INFECTION
     Dosage: FORGOT SORRY?
     Route: 048
  6. AVAIR [Concomitant]

REACTIONS (9)
  - Insomnia [None]
  - Trigger finger [None]
  - Muscle tightness [None]
  - Fatigue [None]
  - Tendonitis [None]
  - Paraesthesia [None]
  - Tendon disorder [None]
  - Muscle twitching [None]
  - Nerve injury [None]
